FAERS Safety Report 17900368 (Version 2)
Quarter: 2020Q2

REPORT INFORMATION
  Report Type: Spontaneous
  Country: US (occurrence: US)
  Receive Date: 20200616
  Receipt Date: 20200617
  Transmission Date: 20200714
  Serious: No
  Sender: FDA-Public Use
  Company Number: US-PFIZER INC-2020232646

PATIENT
  Age: 53 Year
  Sex: Male
  Weight: 71.67 kg

DRUGS (1)
  1. NICOTROL [Suspect]
     Active Substance: NICOTINE
     Indication: SMOKING CESSATION THERAPY
     Dosage: 10 MG
     Dates: start: 202006

REACTIONS (4)
  - Headache [Unknown]
  - Pain [Unknown]
  - Drug ineffective [Unknown]
  - Tongue discomfort [Unknown]
